FAERS Safety Report 15441953 (Version 6)
Quarter: 2018Q4

REPORT INFORMATION
  Report Type: Report from Study
  Country: DE (occurrence: DE)
  Receive Date: 20180928
  Receipt Date: 20181212
  Transmission Date: 20190204
  Serious: Yes (Hospitalization)
  Sender: FDA-Public Use
  Company Number: DE-SA-2018SA264596

PATIENT
  Age: 18 Year
  Sex: Female
  Weight: 60 kg

DRUGS (1)
  1. ALEMTUZUMAB [Suspect]
     Active Substance: ALEMTUZUMAB
     Indication: MULTIPLE SCLEROSIS RELAPSE
     Dosage: 12 MG, QD
     Route: 041
     Dates: start: 20180917, end: 20180921

REACTIONS (5)
  - Headache [Recovered/Resolved]
  - Rash [Not Recovered/Not Resolved]
  - Headache [Recovered/Resolved]
  - Staphylococcal infection [Recovering/Resolving]
  - Headache [Recovered/Resolved]

NARRATIVE: CASE EVENT DATE: 20180917
